FAERS Safety Report 17506369 (Version 1)
Quarter: 2020Q1

REPORT INFORMATION
  Report Type: Spontaneous
  Country: BR (occurrence: BR)
  Receive Date: 20200306
  Receipt Date: 20200306
  Transmission Date: 20200409
  Serious: Yes (Life-Threatening, Hospitalization)
  Sender: FDA-Public Use
  Company Number: BR-CELLTRION INC.-2020BR020256

PATIENT

DRUGS (2)
  1. INFLIXIMAB (UNKNOWN) [Suspect]
     Active Substance: INFLIXIMAB
     Indication: PRODUCT USED FOR UNKNOWN INDICATION
     Dosage: UNK
     Route: 065
  2. ENBREL [Concomitant]
     Active Substance: ETANERCEPT
     Dosage: UNK (STARTED 3 YEARS AGO)
     Dates: end: 20200124

REACTIONS (10)
  - Feeling abnormal [Unknown]
  - Pruritus [Unknown]
  - Hypersensitivity [Unknown]
  - Condition aggravated [Unknown]
  - Fear [Unknown]
  - Urinary tract infection [Unknown]
  - Swelling face [Unknown]
  - Vasculitis [Unknown]
  - Vomiting [Unknown]
  - Rash macular [Unknown]

NARRATIVE: CASE EVENT DATE: 2015
